FAERS Safety Report 26131926 (Version 1)
Quarter: 2025Q4

REPORT INFORMATION
  Report Type: Spontaneous
  Country: EU (occurrence: EU)
  Receive Date: 20251208
  Receipt Date: 20251208
  Transmission Date: 20260118
  Serious: Yes (Other)
  Sender: PFIZER
  Company Number: EU-JNJFOC-20251157930

PATIENT
  Sex: Female
  Weight: 66 kg

DRUGS (11)
  1. PEMETREXED [Suspect]
     Active Substance: PEMETREXED
     Dosage: UNK
     Route: 065
     Dates: end: 20250603
  2. PEMETREXED [Suspect]
     Active Substance: PEMETREXED
     Dosage: 500 MG/M2
     Route: 065
     Dates: start: 20250610
  3. CARBOPLATIN [Suspect]
     Active Substance: CARBOPLATIN
     Dosage: UNK
  4. AMIVANTAMAB [Suspect]
     Active Substance: AMIVANTAMAB
     Indication: Non-small cell lung cancer
     Dosage: 1400 MG
     Route: 065
     Dates: start: 20250520
  5. AMIVANTAMAB [Suspect]
     Active Substance: AMIVANTAMAB
     Dosage: 1400 MG (2ND INFUSION ON 27MAY2025)
     Route: 065
     Dates: start: 20250527
  6. AMIVANTAMAB [Suspect]
     Active Substance: AMIVANTAMAB
     Dosage: UNK
     Route: 065
     Dates: end: 20250603
  7. AMIVANTAMAB [Suspect]
     Active Substance: AMIVANTAMAB
     Dosage: 1400 MG
     Route: 065
     Dates: start: 20250610, end: 20250610
  8. AMIVANTAMAB [Suspect]
     Active Substance: AMIVANTAMAB
     Dosage: 1750 MG
     Route: 065
     Dates: start: 20250701
  9. AMIVANTAMAB [Suspect]
     Active Substance: AMIVANTAMAB
     Dosage: 1750 MG
     Route: 065
     Dates: start: 20250722
  10. AMIVANTAMAB [Suspect]
     Active Substance: AMIVANTAMAB
     Dosage: 1750 MG
     Route: 065
     Dates: start: 20250925
  11. AMIVANTAMAB [Suspect]
     Active Substance: AMIVANTAMAB
     Dosage: UNK
     Route: 065
     Dates: end: 20251016

REACTIONS (3)
  - Acute kidney injury [Unknown]
  - Bicytopenia [Unknown]
  - Neutropenia [Unknown]

NARRATIVE: CASE EVENT DATE: 20251013
